FAERS Safety Report 24629000 (Version 1)
Quarter: 2024Q4

REPORT INFORMATION
  Report Type: Spontaneous
  Country: US (occurrence: US)
  Receive Date: 20241118
  Receipt Date: 20241118
  Transmission Date: 20250115
  Serious: Yes (Other)
  Sender: MERCK
  Company Number: US-009507513-2411USA004913

PATIENT
  Sex: Female

DRUGS (2)
  1. WINREVAIR [Suspect]
     Active Substance: SOTATERCEPT-CSRK
     Dosage: 0.3 MILLIGRAM/KILOGRAM
     Route: 065
  2. SERALUTINIB [Concomitant]
     Active Substance: SERALUTINIB

REACTIONS (1)
  - Thrombocytopenia [Unknown]
